FAERS Safety Report 9153821 (Version 3)
Quarter: 2014Q2

REPORT INFORMATION
  Report Type: Spontaneous
  Country: CN (occurrence: CN)
  Receive Date: 20130311
  Receipt Date: 20140512
  Transmission Date: 20141212
  Serious: Yes (Hospitalization)
  Sender: FDA-Public Use
  Company Number: PHHY2013CN022791

PATIENT
  Age: 55 Year
  Sex: Female

DRUGS (4)
  1. MIACALCIC [Suspect]
     Indication: OSTEOPOROSIS POSTMENOPAUSAL
     Dosage: 50 IU, QD
     Route: 030
     Dates: start: 20130220, end: 20130307
  2. ACLASTA [Suspect]
     Indication: OSTEOPOROSIS POSTMENOPAUSAL
     Dosage: 5 MG, QD
     Route: 042
     Dates: start: 20130301, end: 20130301
  3. ROCALTROL [Concomitant]
     Indication: OSTEOPOROSIS POSTMENOPAUSAL
     Dosage: 0.25 UG, BID
     Route: 030
     Dates: start: 20130220, end: 20130307
  4. CALTRATE D [Concomitant]
     Indication: OSTEOPOROSIS POSTMENOPAUSAL
     Dosage: 600 MG, QD
     Route: 048
     Dates: start: 20130220, end: 20130307

REACTIONS (6)
  - Peripheral coldness [Not Recovered/Not Resolved]
  - Limb discomfort [Not Recovered/Not Resolved]
  - Pyrexia [Recovered/Resolved]
  - Arthralgia [Recovered/Resolved]
  - Hyperpyrexia [Recovered/Resolved]
  - Malaise [Recovered/Resolved]
